FAERS Safety Report 6241108-8 (Version None)
Quarter: 2009Q2

REPORT INFORMATION
  Report Type: 
  Country: None (occurrence: None)
  Receive Date: 20090623
  Receipt Date: 20090521
  Transmission Date: 20091009
  Serious: Yes (Other)
  Sender: FDA-Public Use
  Company Number: NL-JNJFOC-20090506194

PATIENT
  Sex: Female

DRUGS (2)
  1. RISPERDAL [Suspect]
     Route: 048
  2. RISPERDAL [Suspect]
     Indication: AUTISM
     Route: 048

REACTIONS (5)
  - EPISTAXIS [None]
  - MUSCLE RIGIDITY [None]
  - SALIVARY HYPERSECRETION [None]
  - TREMOR [None]
  - VARICOSE VEIN [None]
